FAERS Safety Report 10015760 (Version 2)
Quarter: 2014Q1

REPORT INFORMATION
  Report Type: Spontaneous
  Country: FR (occurrence: FR)
  Receive Date: 20140317
  Receipt Date: 20140317
  Transmission Date: 20141002
  Serious: Yes (Other)
  Sender: FDA-Public Use
  Company Number: US-ASTRAZENECA-2014SE12535

PATIENT
  Age: 16 Month
  Sex: Female
  Weight: 6.7 kg

DRUGS (6)
  1. SYNAGIS [Suspect]
     Indication: ANTIVIRAL PROPHYLAXIS
     Dosage: EVERY 28 DAYS
     Route: 030
     Dates: start: 201310, end: 201403
  2. SYNAGIS [Suspect]
     Indication: ANTIVIRAL PROPHYLAXIS
     Route: 030
  3. BECOTIDE [Concomitant]
     Indication: ASTHMA
     Route: 055
  4. BECOTIDE [Concomitant]
     Indication: BRONCHOPULMONARY DYSPLASIA
     Route: 055
  5. SINGULAIR [Concomitant]
     Indication: BRONCHOPULMONARY DYSPLASIA
     Dosage: EVERY DAY
  6. SINGULAIR [Concomitant]
     Indication: ASTHMA
     Dosage: EVERY DAY

REACTIONS (2)
  - Lung infection [Recovered/Resolved]
  - Respiratory syncytial virus bronchiolitis [Recovered/Resolved]
